FAERS Safety Report 5876866-5 (Version None)
Quarter: 2008Q3

REPORT INFORMATION
  Report Type: 
  Country: None (occurrence: None)
  Receive Date: 20080909
  Receipt Date: 20080909
  Transmission Date: 20090109
  Serious: Yes (Other)
  Sender: FDA-Public Use
  Company Number: None

PATIENT
  Age: 60 Year
  Sex: Female
  Weight: 83.5 kg

DRUGS (3)
  1. ADRIAMYCIN PFS [Suspect]
     Indication: BREAST CANCER
     Dosage: 60 MG/M2 Q 2 WEEKS IV
     Route: 042
     Dates: start: 19980813, end: 19990114
  2. CYTOXAN [Suspect]
     Dosage: 600 MG/M2 Q 2 WEEKS IV
     Route: 042
     Dates: start: 19980101, end: 19990114
  3. TAXOL [Suspect]
     Dosage: 175 MG/M2 Q2 WEEKS IV
     Route: 042
     Dates: start: 19980101, end: 19990114

REACTIONS (1)
  - CONTRALATERAL BREAST CANCER [None]
